FAERS Safety Report 16571822 (Version 1)
Quarter: 2019Q3

REPORT INFORMATION
  Report Type: Spontaneous
  Country: US (occurrence: US)
  Receive Date: 20190715
  Receipt Date: 20190715
  Transmission Date: 20191004
  Serious: No
  Sender: FDA-Public Use
  Company Number: US-PFIZER INC-2019300512

PATIENT
  Age: 86 Year
  Sex: Female

DRUGS (2)
  1. LYRICA [Suspect]
     Active Substance: PREGABALIN
     Dosage: 250 MG, DAILY (INCREASE TO 2 CAPS AM, 1 CAP MIDDAY, AND 2 CAPS PM)
  2. LYRICA [Suspect]
     Active Substance: PREGABALIN
     Indication: POLYNEUROPATHY
     Dosage: 200 MG, DAILY (TAKE 1 CAPSULE AM, 1 CAPSULE MIDDAY, AND 2 CAPS AT NIGHT FOR 2 WEEKS)

REACTIONS (1)
  - Therapeutic product effect incomplete [Unknown]
